FAERS Safety Report 14151590 (Version 1)
Quarter: 2017Q4

REPORT INFORMATION
  Report Type: Spontaneous
  Country: CA (occurrence: CA)
  Receive Date: 20171102
  Receipt Date: 20171102
  Transmission Date: 20180321
  Serious: Yes (Other)
  Sender: FDA-Public Use
  Company Number: CA-AMGEN-CANSP2017164909

PATIENT
  Age: 76 Year
  Sex: Female

DRUGS (35)
  1. METHOTREXATE. [Suspect]
     Active Substance: METHOTREXATE
     Indication: PRODUCT USED FOR UNKNOWN INDICATION
     Dosage: 25 MG, QD
     Route: 065
  2. KENALOG [Concomitant]
     Active Substance: TRIAMCINOLONE ACETONIDE
     Dosage: 40 MG, UNK
  3. VAGIFEM [Concomitant]
     Active Substance: ESTRADIOL
  4. ACETAMINOPHEN. [Concomitant]
     Active Substance: ACETAMINOPHEN
  5. CODEINE [Concomitant]
     Active Substance: CODEINE
  6. NORFLEX [Concomitant]
     Active Substance: ORPHENADRINE CITRATE
  7. PANTOPRAZOLE SODIUM. [Concomitant]
     Active Substance: PANTOPRAZOLE SODIUM
  8. RITUXAN [Concomitant]
     Active Substance: RITUXIMAB
  9. ENBREL [Suspect]
     Active Substance: ETANERCEPT
     Indication: RHEUMATOID ARTHRITIS
     Dosage: 25 MG, UNK
     Route: 065
  10. ACTEMRA [Suspect]
     Active Substance: TOCILIZUMAB
     Indication: PRODUCT USED FOR UNKNOWN INDICATION
     Route: 065
  11. HYDROXYCHLOROQUINE [Suspect]
     Active Substance: HYDROXYCHLOROQUINE
     Dosage: 200 MG, BID
     Route: 065
  12. DESOXIMETASONE. [Concomitant]
     Active Substance: DESOXIMETASONE
  13. DIPHENHYDRAMINE. [Concomitant]
     Active Substance: DIPHENHYDRAMINE
  14. ORENCIA [Suspect]
     Active Substance: ABATACEPT
     Indication: PRODUCT USED FOR UNKNOWN INDICATION
     Route: 065
  15. ATIVAN [Concomitant]
     Active Substance: LORAZEPAM
  16. DEXAMETHASONE. [Concomitant]
     Active Substance: DEXAMETHASONE
  17. DILAUDID [Concomitant]
     Active Substance: HYDROMORPHONE HYDROCHLORIDE
  18. RESTASIS [Concomitant]
     Active Substance: CYCLOSPORINE
  19. TRIMETHOPRIM. [Concomitant]
     Active Substance: TRIMETHOPRIM
  20. HYDROMORPHONE [Concomitant]
     Active Substance: HYDROMORPHONE
  21. ARAVA [Suspect]
     Active Substance: LEFLUNOMIDE
     Indication: PRODUCT USED FOR UNKNOWN INDICATION
     Dosage: 20 MG, QD
     Route: 065
  22. SODIUM AUROTHIOMALATE [Suspect]
     Active Substance: GOLD SODIUM THIOMALATE
     Indication: PRODUCT USED FOR UNKNOWN INDICATION
     Route: 065
  23. ENABLEX [Concomitant]
     Active Substance: DARIFENACIN HYDROBROMIDE
  24. URISPAS [Concomitant]
     Active Substance: FLAVOXATE HYDROCHLORIDE
     Dosage: 200 MG, UNK
  25. XELJANZ [Suspect]
     Active Substance: TOFACITINIB CITRATE
     Indication: PRODUCT USED FOR UNKNOWN INDICATION
     Route: 065
  26. KINERET [Concomitant]
     Active Substance: ANAKINRA
     Dosage: 100 MG, UNK
  27. OXYNEO [Concomitant]
     Active Substance: OXYCODONE
  28. HUMIRA [Suspect]
     Active Substance: ADALIMUMAB
     Indication: PRODUCT USED FOR UNKNOWN INDICATION
     Dosage: 40 MG, UNK
     Route: 065
  29. HYDROXYCHLOROQUINE [Suspect]
     Active Substance: HYDROXYCHLOROQUINE
     Indication: PRODUCT USED FOR UNKNOWN INDICATION
     Route: 065
  30. REMICADE [Suspect]
     Active Substance: INFLIXIMAB
     Indication: PRODUCT USED FOR UNKNOWN INDICATION
     Dosage: 300 MG, UNK
     Route: 065
  31. KADIAN [Concomitant]
     Active Substance: MORPHINE SULFATE
  32. LASIX [Concomitant]
     Active Substance: FUROSEMIDE
  33. LOPERAMIDE [Concomitant]
     Active Substance: LOPERAMIDE
  34. OMNARIS [Concomitant]
     Active Substance: CICLESONIDE
  35. SYNTHROID [Concomitant]
     Active Substance: LEVOTHYROXINE SODIUM

REACTIONS (16)
  - Blood cholesterol increased [Unknown]
  - Fibromyalgia [Unknown]
  - Synovitis [Unknown]
  - Arthritis [Unknown]
  - Joint swelling [Unknown]
  - Liver function test abnormal [Unknown]
  - Leukopenia [Unknown]
  - Herpes zoster [Unknown]
  - Infection [Unknown]
  - Soft tissue disorder [Unknown]
  - Anaemia [Unknown]
  - Drug ineffective [Unknown]
  - Peripheral swelling [Unknown]
  - Pneumonia viral [Unknown]
  - Arthralgia [Unknown]
  - Drug effect incomplete [Unknown]
